FAERS Safety Report 17239299 (Version 1)
Quarter: 2020Q1

REPORT INFORMATION
  Report Type: Spontaneous
  Country: US (occurrence: US)
  Receive Date: 20200106
  Receipt Date: 20200106
  Transmission Date: 20200409
  Serious: No
  Sender: FDA-Public Use
  Company Number: US-ABBVIE-19K-163-3000973-00

PATIENT
  Sex: Male

DRUGS (4)
  1. BENADRYL [Concomitant]
     Active Substance: DIPHENHYDRAMINE HYDROCHLORIDE
     Indication: PRODUCT USED FOR UNKNOWN INDICATION
  2. RITUXAN [Suspect]
     Active Substance: RITUXIMAB
     Indication: PRODUCT USED FOR UNKNOWN INDICATION
     Route: 065
  3. VENCLEXTA [Suspect]
     Active Substance: VENETOCLAX
     Indication: CHRONIC LYMPHOCYTIC LEUKAEMIA
     Route: 048
     Dates: start: 201809
  4. VENCLEXTA [Suspect]
     Active Substance: VENETOCLAX
     Dosage: WITH A MEAL AND WATER APPROXIMATELY THE SAME TIME EACH DAY
     Route: 048

REACTIONS (5)
  - Fat tissue decreased [Unknown]
  - Erythema [Not Recovered/Not Resolved]
  - Pain in extremity [Unknown]
  - Adverse drug reaction [Recovered/Resolved]
  - Musculoskeletal disorder [Unknown]

NARRATIVE: CASE EVENT DATE: 2019
